FAERS Safety Report 22141902 (Version 1)
Quarter: 2023Q1

REPORT INFORMATION
  Report Type: Spontaneous
  Country: US (occurrence: US)
  Receive Date: 20230327
  Receipt Date: 20230327
  Transmission Date: 20230418
  Serious: No
  Sender: FDA-Public Use
  Company Number: US-SA-SAC20230324000568

PATIENT
  Age: 49 Year
  Sex: Male
  Weight: 90.7 kg

DRUGS (11)
  1. FABRAZYME [Suspect]
     Active Substance: AGALSIDASE BETA
     Indication: Fabry^s disease
     Dosage: 90 MG, QOW
     Route: 042
     Dates: start: 20140516
  2. EPINEPHRINE [Concomitant]
     Active Substance: EPINEPHRINE
  3. SODIUM BICARBONATE [Concomitant]
     Active Substance: SODIUM BICARBONATE
  4. STERILE WATER [Concomitant]
     Active Substance: WATER
  5. ACETAMINOPHEN [Concomitant]
     Active Substance: ACETAMINOPHEN
  6. LOKELMA [Concomitant]
     Active Substance: SODIUM ZIRCONIUM CYCLOSILICATE
  7. SODIUM CHLORIDE [Concomitant]
     Active Substance: SODIUM CHLORIDE
  8. ASPIRIN [Concomitant]
     Active Substance: ASPIRIN
  9. LEVOTHYROXINE [Concomitant]
     Active Substance: LEVOTHYROXINE
  10. RAMIPRIL [Concomitant]
     Active Substance: RAMIPRIL
  11. MODERNA COVID-19 VACCINE [Concomitant]
     Active Substance: ELASOMERAN
     Indication: Immunisation

REACTIONS (3)
  - Nasopharyngitis [Unknown]
  - Cough [Unknown]
  - Dyspnoea [Unknown]

NARRATIVE: CASE EVENT DATE: 20230319
